FAERS Safety Report 7664504-0 (Version None)
Quarter: 2011Q3

REPORT INFORMATION
  Report Type: 
  Country: None (occurrence: None)
  Receive Date: 20110806
  Receipt Date: 20110222
  Transmission Date: 20111222
  Serious: No
  Sender: FDA-Public Use
  Company Number: US-ABBOTT-11P-163-0706904-00

PATIENT
  Sex: Female
  Weight: 81.72 kg

DRUGS (5)
  1. NYQUIL [Concomitant]
     Indication: PRODUCT USED FOR UNKNOWN INDICATION
  2. ADVIL COLD AND SINUS [Concomitant]
     Indication: PRODUCT USED FOR UNKNOWN INDICATION
  3. LEVAQUIN [Concomitant]
     Indication: NASOPHARYNGITIS
  4. THYROID TAB [Concomitant]
     Indication: PRODUCT USED FOR UNKNOWN INDICATION
  5. NIASPAN [Suspect]
     Indication: BLOOD TRIGLYCERIDES INCREASED
     Dates: start: 20110214, end: 20110221

REACTIONS (3)
  - DIARRHOEA [None]
  - EYE SWELLING [None]
  - NASOPHARYNGITIS [None]
